FAERS Safety Report 23863752 (Version 4)
Quarter: 2024Q3

REPORT INFORMATION
  Report Type: Spontaneous
  Country: US (occurrence: US)
  Receive Date: 20240516
  Receipt Date: 20240814
  Transmission Date: 20241017
  Serious: Yes (Other)
  Sender: PFIZER
  Company Number: US-PFIZER INC-PV202400063271

PATIENT
  Age: 74 Year
  Sex: Female
  Weight: 57.596 kg

DRUGS (3)
  1. VORICONAZOLE [Suspect]
     Active Substance: VORICONAZOLE
     Indication: Fungaemia
     Dosage: 200 MG, 2X/DAY
  2. VORICONAZOLE [Suspect]
     Active Substance: VORICONAZOLE
     Dosage: MORNING: 2 TABLETS EVENING: 2 TABLETS TAKE 2 TABLETS BY MOUTH EVERY 12 HOURS FOR 1 MONTH
     Route: 048
  3. VORICONAZOLE [Suspect]
     Active Substance: VORICONAZOLE
     Dosage: 200 MG, 2X/DAY
     Route: 048
     Dates: start: 20240417, end: 20240421

REACTIONS (17)
  - Hallucination [Recovering/Resolving]
  - Cataract [Unknown]
  - Vitreous floaters [Recovered/Resolved]
  - Vision blurred [Not Recovered/Not Resolved]
  - Pollakiuria [Unknown]
  - Insomnia [Unknown]
  - Fear [Unknown]
  - Chromaturia [Unknown]
  - Epistaxis [Recovered/Resolved]
  - Visual impairment [Unknown]
  - Language disorder [Unknown]
  - Auditory disorder [Unknown]
  - Communication disorder [Unknown]
  - Condition aggravated [Unknown]
  - Arthralgia [Unknown]
  - Pain in extremity [Unknown]
  - Prescribed overdose [Unknown]

NARRATIVE: CASE EVENT DATE: 20240101
